FAERS Safety Report 25537754 (Version 3)
Quarter: 2025Q4

REPORT INFORMATION
  Report Type: Report from Study
  Country: CA (occurrence: CA)
  Receive Date: 20250710
  Receipt Date: 20251022
  Transmission Date: 20260118
  Serious: Yes (Other)
  Sender: TAKEDA
  Company Number: CA-TAKEDA-2025TUS053529

PATIENT
  Age: 51 Year
  Sex: Male

DRUGS (5)
  1. VEDOLIZUMAB [Suspect]
     Active Substance: VEDOLIZUMAB
     Indication: Crohn^s disease
     Dosage: 300 MILLIGRAM
  2. VEDOLIZUMAB [Suspect]
     Active Substance: VEDOLIZUMAB
     Dosage: 300 MILLIGRAM
  3. VEDOLIZUMAB [Suspect]
     Active Substance: VEDOLIZUMAB
     Indication: Crohn^s disease
     Dosage: 108 MILLIGRAM
  4. PREDNISONE [Concomitant]
     Active Substance: PREDNISONE
     Dosage: 40 MILLIGRAM
  5. HYDROCORTISONE [Concomitant]
     Active Substance: HYDROCORTISONE
     Dosage: 40 MILLIGRAM, QD
     Dates: start: 20250108

REACTIONS (8)
  - Haematochezia [Unknown]
  - Diarrhoea [Unknown]
  - Poor venous access [Unknown]
  - Frequent bowel movements [Unknown]
  - Therapy partial responder [Unknown]
  - Malaise [Unknown]
  - Abdominal pain [Unknown]
  - Arthralgia [Unknown]
